FAERS Safety Report 5365526-5 (Version None)
Quarter: 2007Q2

REPORT INFORMATION
  Report Type: 
  Country: None (occurrence: None)
  Receive Date: 20070621
  Receipt Date: 20070618
  Transmission Date: 20071010
  Serious: Yes (Hospitalization)
  Sender: FDA-Public Use
  Company Number: A0657233A

PATIENT
  Age: 81 Year
  Sex: Female

DRUGS (2)
  1. AVANDIA [Suspect]
     Indication: DRUG USE FOR UNKNOWN INDICATION
     Route: 048
     Dates: start: 20040101, end: 20040101
  2. NO CONCURRENT MEDICATION [Concomitant]

REACTIONS (3)
  - DYSPNOEA [None]
  - HYPERSENSITIVITY [None]
  - URTICARIA [None]
